FAERS Safety Report 9158160 (Version 2)
Quarter: 2013Q1

REPORT INFORMATION
  Report Type: Spontaneous
  Country: CN (occurrence: None)
  Receive Date: 20130212
  Receipt Date: 20130214
  Transmission Date: 20140127
  Serious: Yes (Other)
  Sender: FDA-Public Use
  Company Number: VAL_01387_2013

PATIENT
  Age: 21 Year
  Sex: Male

DRUGS (3)
  1. METOPROLOL TARTRATE [Suspect]
     Indication: HYPERTENSION
  2. AMLODIPINE [Concomitant]
  3. ISOSORBIDE MONONITRATE [Concomitant]

REACTIONS (6)
  - Delirium [None]
  - Hepatic steatosis [None]
  - Anxiety [None]
  - Fear [None]
  - Incoherent [None]
  - Panic attack [None]
